FAERS Safety Report 20125465 (Version 1)
Quarter: 2021Q4

REPORT INFORMATION
  Report Type: Spontaneous
  Country: FR (occurrence: FR)
  Receive Date: 20211129
  Receipt Date: 20211129
  Transmission Date: 20220304
  Serious: Yes (Hospitalization)
  Sender: FDA-Public Use
  Company Number: FR-drreddys-LIT/FRA/21/0144211

PATIENT
  Age: 55 Year
  Sex: Female

DRUGS (3)
  1. LENALIDOMIDE [Suspect]
     Active Substance: LENALIDOMIDE
     Indication: Plasma cell myeloma
  2. CARFILZOMIB [Suspect]
     Active Substance: CARFILZOMIB
     Indication: Plasma cell myeloma
  3. DEXAMETHASONE [Suspect]
     Active Substance: DEXAMETHASONE
     Indication: Plasma cell myeloma

REACTIONS (11)
  - Cryptosporidiosis infection [Unknown]
  - Immunoglobulins decreased [Unknown]
  - Blood phosphorus decreased [Unknown]
  - Hypoalbuminaemia [Unknown]
  - Inflammation [Unknown]
  - Anaemia [Unknown]
  - Lymphopenia [Unknown]
  - Hypokalaemia [Unknown]
  - Hyponatraemia [Unknown]
  - Acute kidney injury [Unknown]
  - Thrombocytopenia [Unknown]
